FAERS Safety Report 4315632-9 (Version None)
Quarter: 2004Q1

REPORT INFORMATION
  Report Type: 
  Country: None (occurrence: None)
  Receive Date: 20040311
  Receipt Date: 20040226
  Transmission Date: 20041129
  Serious: Yes (Hospitalization, Other)
  Sender: FDA-Public Use
  Company Number: JP-GLAXOSMITHKLINE-B0324764A

PATIENT
  Age: 44 Year
  Sex: Male

DRUGS (6)
  1. ZOVIRAX [Suspect]
     Dosage: 400MG PER DAY
     Route: 065
  2. ADEFOVIR DIPIVOXIL [Suspect]
     Indication: PATHOGEN RESISTANCE
     Dosage: 1TAB PER DAY
     Route: 048
     Dates: start: 20040219, end: 20040223
  3. ZEFIX [Suspect]
     Dosage: 100MG PER DAY
     Route: 048
  4. TACROLIMUS HYDRATE [Concomitant]
     Dosage: 1MG PER DAY
     Route: 065
  5. URSO [Concomitant]
     Dosage: 600MG PER DAY
     Route: 048
  6. BAKTAR [Concomitant]
     Dosage: 8TAB TWO TIMES PER WEEK
     Route: 048

REACTIONS (3)
  - DISORIENTATION [None]
  - LIBIDO INCREASED [None]
  - MENTAL DISORDER [None]
